FAERS Safety Report 6103771-1 (Version None)
Quarter: 2009Q1

REPORT INFORMATION
  Report Type: 
  Country: None (occurrence: None)
  Receive Date: 20090305
  Receipt Date: 20090224
  Transmission Date: 20090719
  Serious: Yes (Other)
  Sender: FDA-Public Use
  Company Number: US-JNJFOC-20090102090

PATIENT
  Age: 56 Year
  Sex: Female
  Weight: 96.16 kg

DRUGS (7)
  1. TYLENOL SORE THROAT DAY COOLBURST [Suspect]
     Route: 048
  2. TYLENOL SORE THROAT DAY COOLBURST [Suspect]
     Indication: OROPHARYNGEAL PAIN
     Dosage: 1000 MG EVERY 4-6 HOURS
     Route: 048
  3. CYMBALTA [Concomitant]
     Indication: DEPRESSION
  4. INDERAL [Concomitant]
     Indication: HYPERTENSION
  5. MAVIK [Concomitant]
     Indication: HYPERTENSION
  6. HUMALOG [Concomitant]
     Indication: TYPE 1 DIABETES MELLITUS
  7. LANTUS [Concomitant]
     Indication: TYPE 1 DIABETES MELLITUS

REACTIONS (2)
  - BLOOD GLUCOSE INCREASED [None]
  - MALAISE [None]
